FAERS Safety Report 9771012 (Version 1)
Quarter: 2013Q4

REPORT INFORMATION
  Report Type: Spontaneous
  Country: CA (occurrence: CA)
  Receive Date: 20131218
  Receipt Date: 20131218
  Transmission Date: 20140711
  Serious: Yes (Death, Hospitalization, Other)
  Sender: FDA-Public Use
  Company Number: CA-B.I. PHARMACEUTICALS,INC./RIDGEFIELD-2013-BI-41902GD

PATIENT
  Age: 74 Year
  Sex: Female

DRUGS (8)
  1. BISACODYL [Suspect]
     Indication: CONSTIPATION
     Dosage: 10 MG
  2. MORPHINE [Suspect]
     Indication: PAIN
     Dosage: Q4H
  3. MIRTAZAPINE [Suspect]
     Indication: MAJOR DEPRESSION
     Dosage: 30 MG
  4. FUROSEMIDE [Suspect]
     Indication: OEDEMA PERIPHERAL
     Dosage: 40 MG
  5. DIMENHYDRINATE [Suspect]
     Indication: VOMITING
     Dosage: Q4H
  6. DOCUSATE SODIUM [Suspect]
     Indication: CONSTIPATION
     Dosage: 200 MG
  7. LACTULOSE [Suspect]
     Indication: CONSTIPATION
     Dosage: 30 ML
  8. SODIUM PHOSPHATE [Suspect]
     Indication: CONSTIPATION
     Dosage: 130 ML

REACTIONS (9)
  - Myocardial infarction [Fatal]
  - Sudden death [Fatal]
  - Colonic pseudo-obstruction [Unknown]
  - Constipation [Unknown]
  - Delirium [Unknown]
  - Mutism [Unknown]
  - Urinary retention [Unknown]
  - Hypokinesia [Unknown]
  - Somnolence [Unknown]
